FAERS Safety Report 20140156 (Version 1)
Quarter: 2021Q4

REPORT INFORMATION
  Report Type: Spontaneous
  Country: AR (occurrence: AR)
  Receive Date: 20211202
  Receipt Date: 20211202
  Transmission Date: 20220303
  Serious: Yes (Hospitalization, Other)
  Sender: FDA-Public Use
  Company Number: AR-AMGEN-ARGSP2021186151

PATIENT
  Age: 62 Year
  Sex: Female

DRUGS (5)
  1. ROMIPLOSTIM [Suspect]
     Active Substance: ROMIPLOSTIM
     Indication: Neutropenia
     Dosage: 250 MICROGRAM, QWK
     Route: 065
  2. ROMIPLOSTIM [Suspect]
     Active Substance: ROMIPLOSTIM
     Indication: Off label use
  3. FILGRASTIM [Suspect]
     Active Substance: FILGRASTIM
     Indication: Product used for unknown indication
     Dosage: UNK
     Route: 065
  4. LENALIDOMIDE [Concomitant]
     Active Substance: LENALIDOMIDE
     Dosage: 10 MILLIGRAM, QD
  5. AZACITIDINE [Concomitant]
     Active Substance: AZACITIDINE

REACTIONS (7)
  - Systemic mastocytosis [Unknown]
  - Haematological malignancy [Unknown]
  - Anaemia [Unknown]
  - Drug effective for unapproved indication [Unknown]
  - Treatment noncompliance [Unknown]
  - Therapy non-responder [Unknown]
  - Off label use [Unknown]
